FAERS Safety Report 4936699-0 (Version None)
Quarter: 2006Q1

REPORT INFORMATION
  Report Type: 
  Country: None (occurrence: None)
  Receive Date: 20060127
  Receipt Date: 20051115
  Transmission Date: 20060701
  Serious: Yes (Other)
  Sender: FDA-Public Use
  Company Number: 2005156589

PATIENT
  Age: 69 Year
  Sex: Female
  Weight: 68.4932 kg

DRUGS (3)
  1. LYRICA [Suspect]
     Indication: NERVE INJURY
     Dosage: 150 MG (75 MG, 2 IN 1 D), ORAL
     Route: 048
     Dates: start: 20051108, end: 20051111
  2. ALEVE [Concomitant]
  3. DARVOCET [Concomitant]

REACTIONS (2)
  - DIFFICULTY IN WALKING [None]
  - MYALGIA [None]
